FAERS Safety Report 6840712-3 (Version None)
Quarter: 2010Q2

REPORT INFORMATION
  Report Type: 
  Country: None (occurrence: None)
  Receive Date: 20100629
  Receipt Date: 20100525
  Transmission Date: 20101027
  Serious: No
  Sender: FDA-Public Use
  Company Number: US-WYE-H15446710

PATIENT
  Age: 45 Year
  Sex: Female
  Weight: 65.83 kg

DRUGS (4)
  1. PRISTIQ [Suspect]
     Indication: DEPRESSION
     Dosage: 50 MG 1X PER 1 DAY, ORAL ; 100 MG 1X PER 2 DAY, ORAL ; 100 MG 1X PER 1 DAY, ORAL
     Route: 048
     Dates: start: 20080801, end: 20081101
  2. PRISTIQ [Suspect]
     Indication: DEPRESSION
     Dosage: 50 MG 1X PER 1 DAY, ORAL ; 100 MG 1X PER 2 DAY, ORAL ; 100 MG 1X PER 1 DAY, ORAL
     Route: 048
     Dates: start: 20081101, end: 20100614
  3. PRISTIQ [Suspect]
     Indication: DEPRESSION
     Dosage: 50 MG 1X PER 1 DAY, ORAL ; 100 MG 1X PER 2 DAY, ORAL ; 100 MG 1X PER 1 DAY, ORAL
     Route: 048
     Dates: start: 20100515
  4. AMPHETAMINE SULFATE [Concomitant]

REACTIONS (8)
  - CONSTIPATION [None]
  - DIARRHOEA [None]
  - DRUG WITHDRAWAL SYNDROME [None]
  - FATIGUE [None]
  - FEMALE ORGASMIC DISORDER [None]
  - INTENTIONAL DRUG MISUSE [None]
  - LIBIDO DECREASED [None]
  - NAUSEA [None]
